FAERS Safety Report 14306455 (Version 1)
Quarter: 2017Q4

REPORT INFORMATION
  Report Type: Spontaneous
  Country: FR (occurrence: FR)
  Receive Date: 20171220
  Receipt Date: 20171220
  Transmission Date: 20180321
  Serious: Yes (Other)
  Sender: FDA-Public Use
  Company Number: FR-MERCK KGAA-2037439

PATIENT
  Sex: Female

DRUGS (1)
  1. NOVOTHYROX [Suspect]
     Active Substance: LEVOTHYROXINE SODIUM
     Indication: PRODUCT USED FOR UNKNOWN INDICATION

REACTIONS (16)
  - Loss of personal independence in daily activities [None]
  - Libido decreased [None]
  - Mental impairment [None]
  - Weight increased [None]
  - Constipation [None]
  - Anxiety [None]
  - Muscle spasms [None]
  - Alopecia [None]
  - Irritability [None]
  - Fatigue [None]
  - Myalgia [None]
  - Disturbance in attention [None]
  - Aggression [None]
  - Social avoidant behaviour [None]
  - Lethargy [None]
  - Hot flush [None]
